FAERS Safety Report 7789944-0 (Version None)
Quarter: 2011Q3

REPORT INFORMATION
  Report Type: 
  Country: None (occurrence: None)
  Receive Date: 20110930
  Receipt Date: 20100825
  Transmission Date: 20111222
  Serious: No
  Sender: FDA-Public Use
  Company Number: US-ASTRAZENECA-2010SE30955

PATIENT
  Age: 47 Year
  Sex: Female
  Weight: 42.1 kg

DRUGS (2)
  1. EFFEXOR XR [Concomitant]
     Indication: HOT FLUSH
  2. ARIMIDEX [Suspect]
     Indication: BREAST CANCER
     Route: 048
     Dates: start: 20100201, end: 20100405

REACTIONS (7)
  - ALOPECIA [None]
  - OROPHARYNGEAL PAIN [None]
  - OROPHARYNGEAL DISCOMFORT [None]
  - EAR PAIN [None]
  - ARTHRALGIA [None]
  - DEPRESSION [None]
  - HOT FLUSH [None]
